FAERS Safety Report 12213960 (Version 1)
Quarter: 2016Q1

REPORT INFORMATION
  Report Type: Other
  Country: US (occurrence: US)
  Receive Date: 20160328
  Receipt Date: 20160328
  Transmission Date: 20160526
  Serious: No
  Sender: FDA-Public Use
  Company Number: US-DEP_02609_2015

PATIENT
  Age: 55 Year
  Sex: Female
  Weight: 55 kg

DRUGS (8)
  1. GRALISE [Suspect]
     Active Substance: GABAPENTIN
     Dosage: [TOOK 3 INSTEAD OF 2]
     Route: 048
     Dates: start: 20150308, end: 20150310
  2. AMBIEN [Concomitant]
     Active Substance: ZOLPIDEM TARTRATE
  3. PRAMIPEXOLE. [Concomitant]
     Active Substance: PRAMIPEXOLE
     Indication: RESTLESS LEGS SYNDROME
     Dosage: DAILY, AT NIGHT
     Dates: start: 2014
  4. GRALISE [Suspect]
     Active Substance: GABAPENTIN
     Indication: OFF LABEL USE
     Dosage: STARTING AT DAY 8 OF THE PACK, TITRATED UP TO 1800 MG, ONCE DAILY
     Route: 048
     Dates: start: 20150311
  5. ARMOUR THYROID [Concomitant]
     Active Substance: THYROID, PORCINE
     Indication: HYPOTHYROIDISM
     Dates: start: 2011
  6. GRALISE [Suspect]
     Active Substance: GABAPENTIN
     Indication: PAIN
     Dosage: SAMPLE PACK, TITRATED UP TO 1200 MG, ONCE DAILY
     Route: 048
     Dates: start: 20150301, end: 20150307
  7. CELEXA [Concomitant]
     Active Substance: CITALOPRAM HYDROBROMIDE
     Indication: DEPRESSION
     Dosage: YEARS, DF
  8. NUCYNTA [Concomitant]
     Active Substance: TAPENTADOL HYDROCHLORIDE
     Indication: PAIN
     Dates: start: 2014

REACTIONS (9)
  - Scab [Not Recovered/Not Resolved]
  - Cough [Not Recovered/Not Resolved]
  - Nasopharyngitis [Not Recovered/Not Resolved]
  - Product blister packaging issue [Not Recovered/Not Resolved]
  - Oropharyngeal pain [Not Recovered/Not Resolved]
  - Pain in extremity [Not Recovered/Not Resolved]
  - Skin irritation [Not Recovered/Not Resolved]
  - Laceration [Not Recovered/Not Resolved]
  - Extra dose administered [Recovered/Resolved]

NARRATIVE: CASE EVENT DATE: 201503
